FAERS Safety Report 5159129-5 (Version None)
Quarter: 2006Q4

REPORT INFORMATION
  Report Type: 
  Country: None (occurrence: None)
  Receive Date: 20061117
  Receipt Date: 20061031
  Transmission Date: 20070319
  Serious: Yes (Other)
  Sender: FDA-Public Use
  Company Number: CA-2005-008194

PATIENT
  Age: 39 Year
  Sex: Female

DRUGS (1)
  1. BETAFERON (INTERFERON BETA-1B) INJECTION, 250?G [Suspect]
     Indication: RELAPSING-REMITTING MULTIPLE SCLEROSIS
     Dosage: 8 MIU, EVERY 2D, SUBCUTANEOUS
     Route: 058
     Dates: start: 19290829, end: 20050401

REACTIONS (4)
  - CONDITION AGGRAVATED [None]
  - HEPATIC ENZYME ABNORMAL [None]
  - RAYNAUD'S PHENOMENON [None]
  - WHITE BLOOD CELL DISORDER [None]
